FAERS Safety Report 6925261-6 (Version None)
Quarter: 2010Q3

REPORT INFORMATION
  Report Type: 
  Country: None (occurrence: None)
  Receive Date: 20100810
  Receipt Date: 20100802
  Transmission Date: 20110219
  Serious: Yes (Other)
  Sender: FDA-Public Use
  Company Number: 016475

PATIENT
  Sex: Female
  Weight: 67 kg

DRUGS (5)
  1. VIMPAT [Suspect]
     Dosage: (150 MG BID)
     Dates: start: 20100311, end: 20100605
  2. LEVETIRACETAM [Concomitant]
  3. PHENYTOIN [Concomitant]
  4. LAMOTRIGINE [Concomitant]
  5. VALPROATE SODIUM [Concomitant]

REACTIONS (4)
  - ATAXIA [None]
  - DROP ATTACKS [None]
  - EUPHORIC MOOD [None]
  - HYPOTONIA [None]
